FAERS Safety Report 13394373 (Version 2)
Quarter: 2017Q2

REPORT INFORMATION
  Report Type: Report from Study
  Country: US (occurrence: DO)
  Receive Date: 20170402
  Receipt Date: 20170413
  Transmission Date: 20170830
  Serious: Yes (Death)
  Sender: FDA-Public Use
  Company Number: US-SUNOVION-2017SUN001338

PATIENT
  Sex: Male

DRUGS (1)
  1. INDACATEROL AND GLYCOPYRROLATE [Suspect]
     Active Substance: GLYCOPYRROLATE\INDACATEROL MALEATE
     Indication: RESPIRATORY DISORDER
     Dosage: 1 DF, UNK
     Route: 065

REACTIONS (2)
  - Gastrointestinal haemorrhage [Fatal]
  - Product use issue [Unknown]
